FAERS Safety Report 8796154 (Version 1)
Quarter: 2012Q4

REPORT INFORMATION
  Report Type: 
  Country: GB (occurrence: GB)
  Receive Date: 20120919
  Receipt Date: 20120919
  Transmission Date: 20130627
  Serious: Yes (Life-Threatening, Hospitalization)
  Sender: FDA-Public Use
  Company Number: GB-ELI_LILLY_AND_COMPANY-GB201209004280

PATIENT
  Age: 70 Year
  Sex: Female

DRUGS (2)
  1. ALIMTA [Suspect]
  2. CISPLATIN [Concomitant]

REACTIONS (1)
  - Cerebrovascular accident [Unknown]
